FAERS Safety Report 4269990-4 (Version None)
Quarter: 2004Q1

REPORT INFORMATION
  Report Type: 
  Country: None (occurrence: None)
  Receive Date: 20040113
  Receipt Date: 20040113
  Transmission Date: 20041129
  Serious: Yes (Hospitalization)
  Sender: FDA-Public Use
  Company Number: None

PATIENT
  Age: 66 Year
  Sex: Female

DRUGS (12)
  1. NAPROXEN [Suspect]
     Indication: PAIN
     Dosage: 375 MG TID
     Dates: start: 20010401
  2. ASPIRIN [Concomitant]
  3. ATENOLOL [Concomitant]
  4. PREMARIN [Concomitant]
  5. FOSINOPRIL SODIUM [Concomitant]
  6. HYDROCHLOROTHIAZIDE [Concomitant]
  7. LEVOTHYROXINE SODIUM [Concomitant]
  8. METFORMIN HCL [Concomitant]
  9. NIFEDIPINE [Concomitant]
  10. ACIPNEX [Concomitant]
  11. ZOCOR [Concomitant]
  12. SERTRA [Concomitant]

REACTIONS (1)
  - UPPER GASTROINTESTINAL HAEMORRHAGE [None]
